FAERS Safety Report 4641717-3 (Version None)
Quarter: 2005Q2

REPORT INFORMATION
  Report Type: 
  Country: None (occurrence: None)
  Receive Date: 20050420
  Receipt Date: 20050404
  Transmission Date: 20051028
  Serious: Yes (Other)
  Sender: FDA-Public Use
  Company Number: 197478

PATIENT
  Age: 61 Year
  Sex: Female
  Weight: 47.1741 kg

DRUGS (1)
  1. AVONEX [Suspect]
     Indication: MULTIPLE SCLEROSIS
     Dosage: 30 UG; QW; IM
     Route: 030
     Dates: start: 20000908, end: 20031027

REACTIONS (4)
  - BREAST CANCER FEMALE [None]
  - INJECTION SITE PAIN [None]
  - MENTAL DISORDER [None]
  - TREMOR [None]
